FAERS Safety Report 6994465-9 (Version None)
Quarter: 2010Q3

REPORT INFORMATION
  Report Type: 
  Country: None (occurrence: None)
  Receive Date: 20100917
  Receipt Date: 20100906
  Transmission Date: 20110219
  Serious: Yes (Hospitalization, Other)
  Sender: FDA-Public Use
  Company Number: JP-JNJFOC-20100904953

PATIENT
  Sex: Female

DRUGS (12)
  1. CRAVIT [Suspect]
     Indication: BRONCHOPNEUMONIA
     Route: 048
  2. PRANOPROFEN [Interacting]
     Indication: BRONCHOPNEUMONIA
     Route: 048
  3. LUVOX [Suspect]
     Indication: PRODUCT USED FOR UNKNOWN INDICATION
     Route: 065
  4. MARIKINA [Suspect]
     Indication: BRONCHOPNEUMONIA
     Route: 065
  5. CODEIN PHOSPHATE [Suspect]
     Indication: BRONCHOPNEUMONIA
     Route: 065
  6. METHY F [Suspect]
     Indication: BRONCHOPNEUMONIA
     Route: 065
  7. OXELADIN CITRATE [Suspect]
     Indication: BRONCHOPNEUMONIA
     Route: 065
  8. FLAVERIC [Suspect]
     Indication: BRONCHOPNEUMONIA
     Route: 065
  9. AMBROXOL HYDROCHLORIDE [Suspect]
     Indication: BRONCHOPNEUMONIA
     Route: 065
  10. LIPITOR [Concomitant]
     Indication: DYSLIPIDAEMIA
     Route: 048
  11. LANSOPRAZOLE [Concomitant]
     Indication: REFLUX OESOPHAGITIS
     Route: 048
  12. GLAKAY [Concomitant]
     Indication: OSTEOPOROSIS
     Route: 048

REACTIONS (5)
  - BLOOD PRESSURE DECREASED [None]
  - CONVULSION [None]
  - DRUG INTERACTION [None]
  - TREMOR [None]
  - VOMITING [None]
